FAERS Safety Report 20985359 (Version 2)
Quarter: 2023Q1

REPORT INFORMATION
  Report Type: Report from Study
  Country: US (occurrence: US)
  Receive Date: 20220621
  Receipt Date: 20230201
  Transmission Date: 20230418
  Serious: Yes (Other)
  Sender: FDA-Public Use
  Company Number: US-NOVARTISPH-NVSC2022US054309

PATIENT
  Age: 5 Year
  Sex: Male
  Weight: 29.4 kg

DRUGS (8)
  1. TRAMETINIB [Suspect]
     Active Substance: TRAMETINIB
     Indication: Metastatic malignant melanoma
     Dosage: 0.032 MG/KG, QD
     Route: 065
     Dates: start: 20220203
  2. TRAMETINIB [Suspect]
     Active Substance: TRAMETINIB
     Dosage: 0.875 MG, QD
     Route: 048
     Dates: start: 20220204
  3. TRAMETINIB [Suspect]
     Active Substance: TRAMETINIB
     Dosage: 1 MG, QD
     Route: 048
     Dates: start: 20220428, end: 20220526
  4. TRAMETINIB [Suspect]
     Active Substance: TRAMETINIB
     Dosage: 0.875 MG
     Route: 048
     Dates: start: 20220606
  5. BACLOFEN [Concomitant]
     Active Substance: BACLOFEN
     Indication: Product used for unknown indication
     Dosage: 5 MG, TID
     Route: 065
  6. BACLOFEN [Concomitant]
     Active Substance: BACLOFEN
     Dosage: 20 MG, TID
     Route: 065
  7. HYDROCORTISONE [Concomitant]
     Active Substance: HYDROCORTISONE
     Indication: Product used for unknown indication
     Dosage: 2.6 MG, BID
     Route: 065
  8. CLONAZEPAM [Concomitant]
     Active Substance: CLONAZEPAM
     Indication: Product used for unknown indication
     Dosage: 0.5 MG, QID
     Route: 065

REACTIONS (3)
  - Dermatitis [Recovered/Resolved]
  - Eczema [Recovered/Resolved]
  - Neoplasm progression [Unknown]

NARRATIVE: CASE EVENT DATE: 20220221
